FAERS Safety Report 9342129 (Version 1)
Quarter: 2013Q2

REPORT INFORMATION
  Report Type: Report from Study
  Country: JP (occurrence: JP)
  Receive Date: 20130611
  Receipt Date: 20130611
  Transmission Date: 20140414
  Serious: Yes (Hospitalization)
  Sender: FDA-Public Use
  Company Number: JP-009507513-2007-169646-NL

PATIENT
  Age: 39 Year
  Sex: Female
  Weight: 46.55 kg

DRUGS (14)
  1. FOLLITROPIN BETA [Suspect]
     Indication: OVULATION INDUCTION
     Dosage: CONTINUING: NO
     Route: 030
     Dates: start: 20070827, end: 20070827
  2. FOLLITROPIN BETA [Suspect]
     Dosage: CONTINUING: NO
     Route: 058
     Dates: start: 20070829, end: 20070829
  3. FOLLITROPIN BETA [Suspect]
     Dosage: CONTINUING: NO
     Route: 058
     Dates: start: 20070831, end: 20070902
  4. FOLLITROPIN BETA [Suspect]
     Dosage: CONTINUING: NO
     Route: 030
     Dates: start: 20070903, end: 20070903
  5. PREGNYL 5000IU [Suspect]
     Indication: OVULATION INDUCTION
     Dosage: 10000IU, ONCE
     Route: 030
     Dates: start: 20070904, end: 20070904
  6. PREGNYL 5000IU [Suspect]
     Dosage: 5000IU, ONCE
     Route: 030
     Dates: start: 20070906, end: 20070906
  7. PREGNYL 5000IU [Suspect]
     Dosage: 5000 IU, ONCE
     Route: 030
     Dates: start: 20070909, end: 20070909
  8. PREDONINE [Concomitant]
     Indication: ASSISTED FERTILISATION
     Dosage: FREQUENCY: BID
     Route: 048
     Dates: start: 20070827, end: 20070904
  9. ASPIRIN (+) DIHYDROXYALUMINUM AMINOACETATE (+) MAGNESIUM CARBONATE [Concomitant]
     Indication: ASSISTED FERTILISATION
     Dosage: INDICATION 2 (LLT): PREVENTION OF ABORTION (PROPHYLAXIS OF ABORTION)
     Route: 048
     Dates: start: 20070827, end: 20070904
  10. ASPIRIN (+) DIHYDROXYALUMINUM AMINOACETATE (+) MAGNESIUM CARBONATE [Concomitant]
     Indication: ASSISTED FERTILISATION
     Dosage: INDICATION 2 (LLT): PREVENTION OF ABORTION (PROPHYLAXIS OF ABORTION)
     Route: 048
     Dates: start: 20070910, end: 20071025
  11. SEROPHENE [Concomitant]
     Indication: ASSISTED FERTILISATION
     Dosage: FREQUENCY: BID
     Route: 048
     Dates: start: 20070827, end: 20070831
  12. ASIAN GINSENG (+) ASIAN WATER PLANTAIN (+) BUPLEURUM (+) CANG ZHU ATRA [Concomitant]
     Indication: PROPHYLAXIS OF ABORTION
     Dosage: 8.1 G, QD
     Route: 048
     Dates: start: 20070910, end: 20071025
  13. PROGESTERONE [Concomitant]
     Indication: LUTEAL PHASE DEFICIENCY
     Dosage: FREQUENCY: BID
     Route: 067
     Dates: start: 20070910, end: 20071004
  14. CETROTIDE [Concomitant]
     Indication: OVARIAN HYPERSTIMULATION SYNDROME
     Dosage: .25 MG, QD
     Route: 058
     Dates: start: 20070904, end: 20070904

REACTIONS (1)
  - Abortion spontaneous [Recovering/Resolving]
